APPROVED DRUG PRODUCT: URSODIOL
Active Ingredient: URSODIOL
Strength: 500MG
Dosage Form/Route: TABLET;ORAL
Application: A079184 | Product #002
Applicant: TEVA PHARMACEUTICALS USA INC
Approved: May 13, 2009 | RLD: No | RS: No | Type: DISCN